FAERS Safety Report 11634200 (Version 5)
Quarter: 2016Q2

REPORT INFORMATION
  Report Type: Report from Study
  Country: BE (occurrence: BE)
  Receive Date: 20151015
  Receipt Date: 20160616
  Transmission Date: 20160815
  Serious: Yes (Hospitalization)
  Sender: FDA-Public Use
  Company Number: PHHY2013BE151088

PATIENT
  Age: 65 Year
  Sex: Male

DRUGS (1)
  1. TASIGNA [Suspect]
     Active Substance: NILOTINIB
     Indication: CHRONIC MYELOID LEUKAEMIA
     Dosage: 300 MG, BID
     Route: 048
     Dates: start: 20110427

REACTIONS (10)
  - Upper respiratory tract infection [Unknown]
  - Abdominal pain upper [Unknown]
  - Back pain [Unknown]
  - Nasopharyngitis [Unknown]
  - Cholecystitis [Recovered/Resolved]
  - Facial paresis [Unknown]
  - Hypertension [Unknown]
  - Vertigo [Unknown]
  - Vertigo [Recovered/Resolved]
  - Limb discomfort [Unknown]

NARRATIVE: CASE EVENT DATE: 20130625
